FAERS Safety Report 4893825-X (Version None)
Quarter: 2006Q1

REPORT INFORMATION
  Report Type: 
  Country: None (occurrence: None)
  Receive Date: 20060127
  Receipt Date: 20051010
  Transmission Date: 20060701
  Serious: No
  Sender: FDA-Public Use
  Company Number: US-GLAXOSMITHKLINE-A0577669A

PATIENT
  Age: 30 Year
  Sex: Male

DRUGS (6)
  1. MEPRON [Suspect]
     Indication: DRUG USE FOR UNKNOWN INDICATION
     Dosage: 1TSP TWICE PER DAY
     Route: 048
     Dates: start: 20050509
  2. URSODIOL [Concomitant]
  3. ZITHROMAX [Concomitant]
  4. CEFUROXIM SODIUM [Concomitant]
  5. ROCEPHIN [Concomitant]
  6. BIAXIN [Concomitant]

REACTIONS (2)
  - FEELING HOT [None]
  - PHARMACEUTICAL PRODUCT COMPLAINT [None]
